FAERS Safety Report 8671300 (Version 2)
Quarter: 2013Q1

REPORT INFORMATION
  Report Type: Spontaneous
  Country: IT (occurrence: IT)
  Receive Date: 20120718
  Receipt Date: 20130212
  Transmission Date: 20140127
  Serious: Yes (Hospitalization, Other)
  Sender: FDA-Public Use
  Company Number: PHHY2012IT060238

PATIENT
  Sex: Female

DRUGS (1)
  1. TEGRETOL [Suspect]
     Indication: FACIAL NEURALGIA
     Dosage: 2 DF, DAILY
     Route: 048
     Dates: start: 20120502, end: 20120520

REACTIONS (11)
  - Nausea [Unknown]
  - Vomiting [Unknown]
  - Thrombocytopenia [Unknown]
  - Rash morbilliform [Recovered/Resolved]
  - Rash [Recovered/Resolved]
  - Dermatitis [Recovered/Resolved]
  - Blood glucose increased [Recovered/Resolved]
  - Blood pressure increased [Recovered/Resolved]
  - Toxic skin eruption [Unknown]
  - Oxygen saturation decreased [Recovered/Resolved]
  - Diarrhoea [Recovered/Resolved]
